FAERS Safety Report 26106724 (Version 1)
Quarter: 2025Q4

REPORT INFORMATION
  Report Type: Spontaneous
  Country: JP (occurrence: JP)
  Receive Date: 20251201
  Receipt Date: 20251201
  Transmission Date: 20260117
  Serious: Yes (Hospitalization)
  Sender: ROCHE
  Company Number: JP-CHUGAI-2025038182

PATIENT
  Age: 54 Year
  Sex: Female
  Weight: 80.9 kg

DRUGS (15)
  1. ACTEMRA [Suspect]
     Active Substance: TOCILIZUMAB
     Indication: Rheumatoid arthritis
     Dosage: 162 MILLIGRAM, ONCE/2WEEKS
     Route: 058
     Dates: start: 20220801, end: 2023
  2. ACTEMRA [Suspect]
     Active Substance: TOCILIZUMAB
     Dosage: UNK, ONCE/3-4WEEKS
     Route: 058
     Dates: start: 20230828
  3. PREDONINE [Suspect]
     Active Substance: PREDNISOLONE
     Indication: Rheumatoid arthritis
     Dosage: 5MG/DAY
     Route: 048
     Dates: start: 20170615
  4. PREDONINE [Suspect]
     Active Substance: PREDNISOLONE
     Dosage: 10MG/DAY
     Route: 048
     Dates: start: 20230614
  5. LOXOPROFEN SODIUM DIHYDRATE [Concomitant]
     Active Substance: LOXOPROFEN SODIUM DIHYDRATE
     Dosage: UNK
     Route: 048
  6. HEPARINOID [Concomitant]
     Dosage: APPLICATION OF THE DRUG TO A DRY AREA, APPLICATION OF A COMPRESS AT THE ONSET OF PAIN
     Route: 003
  7. CAMPHOR\CAPSICUM\METHYL SALICYLATE [Concomitant]
     Active Substance: CAMPHOR\CAPSICUM\METHYL SALICYLATE
     Dosage: APPLICATION OF A COMPRESS AT THE ONSET OF PAIN
     Route: 061
  8. EDOXABAN TOSYLATE [Concomitant]
     Active Substance: EDOXABAN TOSYLATE
     Dosage: TABLET, ORALLY DISINTEGRATING
     Route: 048
  9. AMLODIPINE [Concomitant]
     Active Substance: AMLODIPINE BESYLATE
     Dosage: TABLET, ORALLY DISINTEGRATING
     Route: 048
  10. TELMISARTAN [Concomitant]
     Active Substance: TELMISARTAN
     Dosage: UNK
     Route: 048
  11. TRICHLORMETHIAZIDE [Concomitant]
     Active Substance: TRICHLORMETHIAZIDE
     Dosage: UNK
     Route: 048
  12. RABEPRAZOLE SODIUM [Concomitant]
     Active Substance: RABEPRAZOLE SODIUM
     Dosage: UNK
     Route: 048
  13. PITAVASTATIN CALCIUM [Concomitant]
     Active Substance: PITAVASTATIN CALCIUM
     Dosage: TABLET, ORALLY DISINTEGRATING
     Route: 048
  14. ALENDRONATE [Concomitant]
     Active Substance: ALENDRONATE SODIUM
     Dosage: UNK
     Route: 048
  15. URSODIOL [Concomitant]
     Active Substance: URSODIOL
     Dosage: UNK
     Route: 048

REACTIONS (8)
  - Multiple organ dysfunction syndrome [Recovering/Resolving]
  - Acute kidney injury [Unknown]
  - Soft tissue infection [Recovered/Resolved]
  - Septic shock [Recovered/Resolved]
  - Bacteraemia [Unknown]
  - Staphylococcal infection [Unknown]
  - Herpes zoster [Unknown]
  - Off label use [Unknown]

NARRATIVE: CASE EVENT DATE: 20230101
